FAERS Safety Report 15313051 (Version 1)
Quarter: 2018Q3

REPORT INFORMATION
  Report Type: Report from Study
  Country: None (occurrence: GB)
  Receive Date: 20180823
  Receipt Date: 20180823
  Transmission Date: 20181010
  Serious: Yes (Hospitalization)
  Sender: FDA-Public Use
  Company Number: GB-BAUSCH-BL-2018-023112

PATIENT
  Age: 79 Year
  Sex: Female

DRUGS (24)
  1. VENETOCLAX. [Suspect]
     Active Substance: VENETOCLAX
     Dosage: 1 (UNIT UNSPECIFIED) IN 1 DAY
     Route: 048
     Dates: start: 20170613
  2. PLACEBO [Suspect]
     Active Substance: UNSPECIFIED INGREDIENT
     Dosage: 1 UNIT UNSPECIFIED IN 1 DAY
     Route: 048
     Dates: start: 20170613
  3. DEXAMETHASONE. [Suspect]
     Active Substance: DEXAMETHASONE
     Indication: PLASMA CELL MYELOMA
     Dosage: DOSAGE FORM: UNSPECIFIED, CYCLE 1?8:(DAYS 1,2,4,5,8,9,11,12) CYCLE 9 AND BEYOND (DAYS 1,2,8,9,15,22,
     Route: 048
     Dates: start: 20170321, end: 20180630
  4. PLACEBO [Suspect]
     Active Substance: UNSPECIFIED INGREDIENT
     Indication: PLASMA CELL MYELOMA
     Dosage: 1 UNIT UNSPECIFIED IN 1 DAY
     Route: 048
     Dates: start: 20170523, end: 20170526
  5. LANSOPRAZOLE. [Concomitant]
     Active Substance: LANSOPRAZOLE
     Route: 048
     Dates: start: 20180621
  6. APIXABAN [Concomitant]
     Active Substance: APIXABAN
     Indication: DEEP VEIN THROMBOSIS
  7. LACTULOSE. [Concomitant]
     Active Substance: LACTULOSE
     Indication: CONSTIPATION
     Dosage: AS REQUIRED
     Route: 048
     Dates: start: 20180301
  8. DEXAMETHASONE. [Suspect]
     Active Substance: DEXAMETHASONE
     Dosage: DOSAGE FORM: UNSPECIFIED, CYCLE 1?8:(DAYS 1,2,4,5,8,9,11,12) CYCLE 9 AND BEYOND (DAYS 1,2,8,9,15,22
     Route: 048
     Dates: start: 20180713
  9. VENETOCLAX. [Suspect]
     Active Substance: VENETOCLAX
     Indication: PLASMA CELL MYELOMA
     Dosage: 1 (UNIT UNSPECIFIED) IN 1 DAY
     Route: 048
     Dates: start: 20170321, end: 20170526
  10. VELCADE [Suspect]
     Active Substance: BORTEZOMIB
     Dosage: DOSAGE FORM: LYOPHILIZED POWDER, CYCLE 1?8:ON (DAYS 1,4,8,11) CYCLE 9 AND BEYOND (DAYS 1,8,15,22)
     Route: 058
     Dates: start: 20170613, end: 20180629
  11. VELCADE [Suspect]
     Active Substance: BORTEZOMIB
     Dosage: DOSAGE FORM: LYOPHILIZED POWDER, CYCLE 1?8:ON (DAYS 1,4,8,11) CYCLE 9 AND BEYOND (DAYS 1,8,15,22)
     Route: 058
     Dates: start: 20170321, end: 20170523
  12. FLUCLOXACILLIN [Concomitant]
     Active Substance: FLUCLOXACILLIN
     Indication: WOUND INFECTION
     Route: 048
     Dates: start: 20180413
  13. ADCAL D3 [Concomitant]
     Active Substance: CALCIUM CARBONATE\CHOLECALCIFEROL
     Indication: NUTRITIONAL SUPPLEMENTATION
     Route: 048
     Dates: start: 20150903
  14. PARACETAMOL [Concomitant]
     Active Substance: ACETAMINOPHEN
     Indication: PAIN IN EXTREMITY
     Dosage: AS REQUIRED
     Route: 048
     Dates: start: 20170608
  15. CETIRIZINE [Concomitant]
     Active Substance: CETIRIZINE HYDROCHLORIDE
     Indication: RASH
     Dosage: AS REQUIRED
     Route: 048
     Dates: start: 20170323
  16. PLACEBO [Suspect]
     Active Substance: UNSPECIFIED INGREDIENT
     Dosage: 1 UNIT UNSPECIFIED IN 1 DAY
     Route: 048
     Dates: start: 20170321, end: 20170526
  17. LOPERAMIDE [Concomitant]
     Active Substance: LOPERAMIDE
     Indication: DIARRHOEA
     Dosage: AS REQUIRED
     Route: 048
     Dates: start: 20170422
  18. APIXABAN [Concomitant]
     Active Substance: APIXABAN
     Indication: THROMBOSIS PROPHYLAXIS
     Route: 048
     Dates: start: 20160811
  19. ZOMETA [Concomitant]
     Active Substance: ZOLEDRONIC ACID
     Indication: OSTEOLYSIS
     Dosage: AS REQUIRED
     Route: 042
     Dates: start: 20150709
  20. VENETOCLAX. [Suspect]
     Active Substance: VENETOCLAX
     Dosage: 1 (UNIT UNSPECIFIED) IN 1 DAY
     Route: 048
     Dates: start: 20170523, end: 20170526
  21. VELCADE [Suspect]
     Active Substance: BORTEZOMIB
     Indication: PLASMA CELL MYELOMA
     Dosage: DOSAGE FORM: LYOPHILIZED POWDER, CYCLE 1?8:ON (DAYS 1,4,8,11) CYCLE 9 AND BEYOND (DAYS 1,8,15,22)
     Route: 058
     Dates: start: 20180713
  22. LANSOPRAZOLE. [Concomitant]
     Active Substance: LANSOPRAZOLE
     Indication: GASTROINTESTINAL DISORDER THERAPY
     Dosage: AS REQUIRED
     Route: 048
     Dates: start: 20170321
  23. METOCLOPRAMIDE. [Concomitant]
     Active Substance: METOCLOPRAMIDE
     Indication: NAUSEA
     Dosage: AS REQUIRED
     Route: 048
     Dates: start: 20170508
  24. FERROUS SULFATE. [Concomitant]
     Active Substance: FERROUS SULFATE
     Indication: BLOOD IRON DECREASED
     Route: 048
     Dates: start: 20180621

REACTIONS (2)
  - Diarrhoea [Recovered/Resolved]
  - Vomiting [Recovered/Resolved]

NARRATIVE: CASE EVENT DATE: 20180701
